FAERS Safety Report 7032989-9 (Version None)
Quarter: 2010Q4

REPORT INFORMATION
  Report Type: 
  Country: None (occurrence: None)
  Receive Date: 20101007
  Receipt Date: 20100927
  Transmission Date: 20110411
  Serious: Yes (Other)
  Sender: FDA-Public Use
  Company Number: US-PFIZER INC-2010122908

PATIENT
  Sex: Male
  Weight: 129.25 kg

DRUGS (2)
  1. DEPO-TESTOSTERONE [Suspect]
     Indication: BLOOD TESTOSTERONE DECREASED
     Dosage: 200 MG, EVERY TEN DAYS
     Route: 030
  2. DEPO-TESTOSTERONE [Suspect]
     Indication: HEART RATE IRREGULAR

REACTIONS (1)
  - ABSCESS [None]
